FAERS Safety Report 6595183-1 (Version None)
Quarter: 2010Q1

REPORT INFORMATION
  Report Type: 
  Country: None (occurrence: None)
  Receive Date: 20100205
  Receipt Date: 20100201
  Transmission Date: 20100710
  Serious: Yes (Death, Hospitalization, Other)
  Sender: FDA-Public Use
  Company Number: 2009-189203-NL

PATIENT
  Age: 36 Year
  Sex: Female
  Weight: 69.4 kg

DRUGS (5)
  1. NUVARING [Suspect]
     Indication: CONTRACEPTION
     Dates: start: 20060101, end: 20070901
  2. LEXAPRO [Concomitant]
  3. CIPROFLOXACIN [Concomitant]
  4. BENZONATATE [Concomitant]
  5. ALBUTEROL [Concomitant]

REACTIONS (30)
  - ABDOMINAL PAIN [None]
  - ANOXIC ENCEPHALOPATHY [None]
  - APNOEA [None]
  - BLADDER PAIN [None]
  - BLOOD CREATININE INCREASED [None]
  - BRAIN HERNIATION [None]
  - BRAIN OEDEMA [None]
  - CARDIAC ARREST [None]
  - COMA [None]
  - DYSURIA [None]
  - ELECTROMECHANICAL DISSOCIATION [None]
  - FALL [None]
  - FATIGUE [None]
  - INTRACRANIAL PRESSURE INCREASED [None]
  - LUNG CONSOLIDATION [None]
  - LUNG INFILTRATION [None]
  - MUSCULOSKELETAL CHEST PAIN [None]
  - MUSCULOSKELETAL PAIN [None]
  - PELVIC PAIN [None]
  - PLEURAL EFFUSION [None]
  - PLEURITIC PAIN [None]
  - PNEUMONIA [None]
  - PULMONARY EMBOLISM [None]
  - PUPIL FIXED [None]
  - PYREXIA [None]
  - RESPIRATORY ARREST [None]
  - RESPIRATORY DISTRESS [None]
  - TOXICOLOGIC TEST ABNORMAL [None]
  - UPPER RESPIRATORY TRACT INFECTION [None]
  - URINARY TRACT INFECTION [None]
